FAERS Safety Report 24036437 (Version 1)
Quarter: 2024Q3

REPORT INFORMATION
  Report Type: Spontaneous
  Country: JP (occurrence: JP)
  Receive Date: 20240701
  Receipt Date: 20240701
  Transmission Date: 20241017
  Serious: Yes (Hospitalization, Other)
  Sender: BRISTOL MYERS SQUIBB
  Company Number: JP-ONO-2023JP012916

PATIENT
  Age: 78 Year
  Sex: Female

DRUGS (2)
  1. OPDIVO [Suspect]
     Active Substance: NIVOLUMAB
     Indication: Oesophageal carcinoma
     Route: 041
     Dates: start: 20220906, end: 20230124
  2. DOCETAXEL [Concomitant]
     Active Substance: DOCETAXEL\DOCETAXEL ANHYDROUS
     Indication: Oesophageal carcinoma
     Dates: end: 20230602

REACTIONS (7)
  - Skin disorder [Unknown]
  - Eosinophilia [Recovering/Resolving]
  - Antinuclear antibody increased [Unknown]
  - Pyrexia [Unknown]
  - Lymphadenopathy [Recovering/Resolving]
  - Splenomegaly [Recovering/Resolving]
  - Oesophageal cancer metastatic [Unknown]

NARRATIVE: CASE EVENT DATE: 20230124
